FAERS Safety Report 10082610 (Version 1)
Quarter: 2014Q2

REPORT INFORMATION
  Report Type: Spontaneous
  Country: SE (occurrence: SE)
  Receive Date: 20140416
  Receipt Date: 20140416
  Transmission Date: 20141212
  Serious: Yes (Other)
  Sender: FDA-Public Use
  Company Number: SE-B.I. PHARMACEUTICALS,INC./RIDGEFIELD-2014-BI-16898SW

PATIENT
  Sex: Female

DRUGS (9)
  1. PRADAXA [Suspect]
     Indication: ATRIAL FIBRILLATION
     Dosage: 220 MG
     Route: 048
     Dates: end: 20131210
  2. PRADAXA [Suspect]
     Dosage: 300 MG
     Route: 048
     Dates: start: 20140113, end: 20140402
  3. CALCICHEW [Concomitant]
     Route: 065
  4. METOPROLOL [Concomitant]
     Route: 065
  5. AMLODIPIN [Concomitant]
     Route: 065
  6. BEHEPAN [Concomitant]
     Route: 065
  7. PROLIXIN [Concomitant]
     Route: 065
  8. DURBIS [Concomitant]
     Route: 065
  9. FORLAX [Concomitant]
     Route: 065

REACTIONS (1)
  - Deep vein thrombosis [Unknown]
